FAERS Safety Report 4710046-1 (Version None)
Quarter: 2005Q3

REPORT INFORMATION
  Report Type: 
  Country: None (occurrence: None)
  Receive Date: 20050708
  Receipt Date: 20050527
  Transmission Date: 20060218
  Serious: Yes (Death, Hospitalization)
  Sender: FDA-Public Use
  Company Number: BEWYE703130MAY05

PATIENT
  Sex: Male

DRUGS (6)
  1. ENBREL [Suspect]
     Indication: RHEUMATOID ARTHRITIS
     Dosage: 25 MG 2 TIMES A WEEK
     Route: 058
     Dates: start: 20040625, end: 20050322
  2. FORMOTEROL [Concomitant]
  3. CLOPIDOGREL BISULFATE [Concomitant]
  4. TIOTROPIUM BROMIDE [Concomitant]
  5. METHYLPREDNISOLONE 16MG TAB [Concomitant]
  6. OMEPRAZOLE [Concomitant]

REACTIONS (6)
  - ASPIRATION [None]
  - BILE DUCT CANCER [None]
  - CARDIO-RESPIRATORY ARREST [None]
  - HEPATIC ENZYME ABNORMAL [None]
  - LUNG NEOPLASM MALIGNANT [None]
  - SEPTIC SHOCK [None]
